FAERS Safety Report 11853910 (Version 3)
Quarter: 2016Q1

REPORT INFORMATION
  Report Type: Spontaneous
  Country: IT (occurrence: IT)
  Receive Date: 20151219
  Receipt Date: 20160224
  Transmission Date: 20160526
  Serious: Yes (Life-Threatening, Hospitalization, Other)
  Sender: FDA-Public Use
  Company Number: IT-AMGEN-ITASP2015136212

PATIENT
  Age: 52 Year
  Sex: Male
  Weight: 92 kg

DRUGS (3)
  1. LUVION [Concomitant]
     Active Substance: CANRENONE
     Indication: HYPERTENSION
     Dosage: UNK
     Dates: start: 20150130
  2. CARNIDYN PLUS [Concomitant]
     Dosage: UNK
     Dates: start: 20150131
  3. PROCORALAN [Suspect]
     Active Substance: IVABRADINE
     Indication: CARDIAC FAILURE
     Dosage: 10 MG, DAILY
     Route: 048
     Dates: start: 20150130, end: 20150215

REACTIONS (8)
  - Coma [Recovered/Resolved]
  - Ventricular tachycardia [Recovered/Resolved]
  - Pneumonia aspiration [Recovered/Resolved]
  - Memory impairment [Recovered/Resolved]
  - Cardiac failure acute [Recovered/Resolved]
  - Cardiac arrest [Recovered/Resolved with Sequelae]
  - Ventricular fibrillation [Recovered/Resolved]
  - Loss of consciousness [Recovered/Resolved]

NARRATIVE: CASE EVENT DATE: 20150215
